FAERS Safety Report 25336333 (Version 1)
Quarter: 2025Q2

REPORT INFORMATION
  Report Type: Spontaneous
  Country: GB (occurrence: GB)
  Receive Date: 20250520
  Receipt Date: 20250520
  Transmission Date: 20250717
  Serious: Yes (Other)
  Sender: MYLAN
  Company Number: GB-MYLANLABS-2025M1034140

PATIENT
  Sex: Male

DRUGS (8)
  1. CLOZARIL [Suspect]
     Active Substance: CLOZAPINE
     Indication: Schizophrenia
  2. CLOZARIL [Suspect]
     Active Substance: CLOZAPINE
  3. AMISULPRIDE [Concomitant]
     Active Substance: AMISULPRIDE
  4. HALOPERIDOL [Concomitant]
     Active Substance: HALOPERIDOL
  5. LITHIUM [Concomitant]
     Active Substance: LITHIUM
  6. QUETIAPINE [Concomitant]
     Active Substance: QUETIAPINE
  7. TOPIRAMATE [Concomitant]
     Active Substance: TOPIRAMATE
  8. VORTIOXETINE [Concomitant]
     Active Substance: VORTIOXETINE

REACTIONS (5)
  - Psychotic disorder [Unknown]
  - Antipsychotic drug level below therapeutic [Unknown]
  - Vomiting [Unknown]
  - Off label use [Unknown]
  - Drug ineffective [Unknown]
